FAERS Safety Report 9124186 (Version 4)
Quarter: 2013Q4

REPORT INFORMATION
  Report Type: Report from Study
  Country: CA (occurrence: CA)
  Receive Date: 20130227
  Receipt Date: 20131213
  Transmission Date: 20140711
  Serious: Yes (Hospitalization, Other)
  Sender: FDA-Public Use
  Company Number: PHHY2013CA004002

PATIENT
  Sex: Female

DRUGS (11)
  1. EXJADE [Suspect]
     Indication: HAEMOLYTIC ANAEMIA
     Dosage: 500 MG, QD
     Route: 048
     Dates: start: 20121115, end: 20130103
  2. EXJADE [Suspect]
     Dosage: 500 UNK, UNK
     Route: 048
     Dates: end: 20130626
  3. EXJADE [Suspect]
     Dosage: 500 MG, QD
     Route: 048
  4. PREDNISONE [Concomitant]
     Dosage: UNK UKN, UNK
  5. EVISTA [Concomitant]
  6. TECTA [Concomitant]
     Dosage: UNK UKN, UNK
  7. COUMADIN ^BOOTS^ [Concomitant]
     Dosage: UNK UKN, UNK
  8. COUMADIN SODIUM [Concomitant]
     Dosage: UNK UKN, UNK
  9. ANTIBIOTICS [Concomitant]
     Dosage: UNK UKN, UNK
  10. ANTIBIOTICS [Concomitant]
     Dosage: UNK UKN, UNK
  11. ANTIBIOTICS [Concomitant]
     Dosage: UNK UKN, UNK

REACTIONS (20)
  - Diverticulitis [Unknown]
  - Cystitis [Recovered/Resolved]
  - Vision blurred [Unknown]
  - Eye disorder [Unknown]
  - Oral fungal infection [Unknown]
  - Oral disorder [Unknown]
  - Glossodynia [Unknown]
  - Dysgeusia [Unknown]
  - Chapped lips [Unknown]
  - Stomatitis [Unknown]
  - Gingival erythema [Unknown]
  - Gingival pain [Unknown]
  - Energy increased [Unknown]
  - Decreased appetite [Unknown]
  - Abdominal pain [Unknown]
  - Abdominal discomfort [Unknown]
  - Abdominal distension [Unknown]
  - Liver disorder [Unknown]
  - Pyrexia [Unknown]
  - Blood creatinine increased [Unknown]
